FAERS Safety Report 11771483 (Version 1)
Quarter: 2015Q4

REPORT INFORMATION
  Report Type: Spontaneous
  Country: US (occurrence: None)
  Receive Date: 20151123
  Receipt Date: 20151123
  Transmission Date: 20160304
  Serious: No
  Sender: FDA-Public Use
  Company Number: None

PATIENT
  Age: 57 Year
  Sex: Male
  Weight: 79.38 kg

DRUGS (5)
  1. LISINOPRIL. [Concomitant]
     Active Substance: LISINOPRIL
  2. OXYCODONE/ACETAMINOPHEN [Concomitant]
     Active Substance: ACETAMINOPHEN\OXYCODONE HYDROCHLORIDE
  3. BACLOFEN 10 MG IVAX PHARMACEAU [Suspect]
     Active Substance: BACLOFEN
     Indication: MUSCLE SPASMS
     Route: 048
     Dates: start: 20151116, end: 20151117
  4. FINASTERIDE. [Concomitant]
     Active Substance: FINASTERIDE
  5. MORPHINE SULFATE. [Concomitant]
     Active Substance: MORPHINE SULFATE

REACTIONS (5)
  - Nightmare [None]
  - Paranoia [None]
  - Coordination abnormal [None]
  - Nervousness [None]
  - Disturbance in attention [None]

NARRATIVE: CASE EVENT DATE: 20151116
